FAERS Safety Report 18588760 (Version 1)
Quarter: 2020Q4

REPORT INFORMATION
  Report Type: Spontaneous
  Country: CN (occurrence: CN)
  Receive Date: 20201207
  Receipt Date: 20201207
  Transmission Date: 20210114
  Serious: No
  Sender: FDA-Public Use
  Company Number: CN-LUPIN PHARMACEUTICALS INC.-2020-09668

PATIENT
  Age: 27 Year
  Sex: Female

DRUGS (2)
  1. AZITHROMYCIN ANHYDROUS. [Suspect]
     Active Substance: AZITHROMYCIN ANHYDROUS
     Indication: ANTIBIOTIC THERAPY
     Dosage: 0.5 MILLIGRAM, QD
     Route: 048
  2. OSELTAMIVIR [Suspect]
     Active Substance: OSELTAMIVIR
     Indication: ANTIVIRAL TREATMENT
     Dosage: 75 MILLIGRAM, BID
     Route: 048

REACTIONS (1)
  - Exposure during pregnancy [Unknown]
